FAERS Safety Report 9460823 (Version 2)
Quarter: 2013Q3

REPORT INFORMATION
  Report Type: Spontaneous
  Country: US (occurrence: US)
  Receive Date: 20130815
  Receipt Date: 20130821
  Transmission Date: 20140515
  Serious: Yes (Other)
  Sender: FDA-Public Use
  Company Number: US-MERCK-1206USA03216

PATIENT
  Age: 68 Year
  Sex: Female

DRUGS (3)
  1. FOSAMAX [Suspect]
     Route: 048
     Dates: start: 1995
  2. CALCIUM (UNSPECIFIED) [Concomitant]
  3. PRAVASTATIN SODIUM [Concomitant]

REACTIONS (2)
  - Femur fracture [Unknown]
  - Femur fracture [Unknown]
